FAERS Safety Report 16265830 (Version 1)
Quarter: 2019Q2

REPORT INFORMATION
  Report Type: Spontaneous
  Country: FR (occurrence: FR)
  Receive Date: 20190502
  Receipt Date: 20190502
  Transmission Date: 20190711
  Serious: Yes (Death, Other)
  Sender: FDA-Public Use
  Company Number: FR-MYLANLABS-2019M1042202

PATIENT
  Age: 58 Year
  Sex: Male

DRUGS (3)
  1. CALCIUM FOLINATE [Suspect]
     Active Substance: LEUCOVORIN CALCIUM
     Indication: LINITIS PLASTICA
     Dosage: UNK UNK, CYCLIC
  2. FLUOROURACIL. [Suspect]
     Active Substance: FLUOROURACIL
     Indication: LINITIS PLASTICA
     Dosage: UNK UNK, CYCLIC
  3. OXALIPLATIN. [Suspect]
     Active Substance: OXALIPLATIN
     Indication: LINITIS PLASTICA
     Dosage: UNK UNK, CYCLIC

REACTIONS (2)
  - Febrile neutropenia [Unknown]
  - Septic shock [Fatal]
